FAERS Safety Report 13822313 (Version 1)
Quarter: 2017Q3

REPORT INFORMATION
  Report Type: Spontaneous
  Country: US (occurrence: US)
  Receive Date: 20170801
  Receipt Date: 20170801
  Transmission Date: 20171127
  Serious: No
  Sender: FDA-Public Use
  Company Number: US-IMPAX LABORATORIES, INC-2016-IPXL-02509

PATIENT
  Sex: Female
  Weight: 61 kg

DRUGS (2)
  1. EMVERM [Suspect]
     Active Substance: MEBENDAZOLE
     Indication: ENTEROBIASIS
     Dosage: ONE 100 MG TABLET THREE TIMES EVERY 2 WEEKS
     Route: 065
     Dates: start: 2016
  2. ALBENZA [Suspect]
     Active Substance: ALBENDAZOLE
     Indication: ENTEROBIASIS
     Dosage: 200 MG, ONE TABLET EVERY TWO WEEKS
     Route: 065
     Dates: start: 20161123, end: 2016

REACTIONS (7)
  - Drug effect incomplete [Not Recovered/Not Resolved]
  - Fatigue [Recovered/Resolved]
  - Muscle spasms [Recovered/Resolved]
  - Off label use [Unknown]
  - Feeling abnormal [Recovered/Resolved]
  - Product use issue [Unknown]
  - Headache [Recovered/Resolved]

NARRATIVE: CASE EVENT DATE: 2016
